FAERS Safety Report 17133060 (Version 1)
Quarter: 2019Q4

REPORT INFORMATION
  Report Type: Spontaneous
  Country: US (occurrence: US)
  Receive Date: 20191209
  Receipt Date: 20191209
  Transmission Date: 20200122
  Serious: Yes (Other)
  Sender: FDA-Public Use
  Company Number: None

PATIENT
  Age: 39 Year
  Sex: Female
  Weight: 49.5 kg

DRUGS (4)
  1. TRETINOIN. [Concomitant]
     Active Substance: TRETINOIN
  2. OXYBUTININ [Concomitant]
     Active Substance: OXYBUTYNIN
  3. VITAMIN B COMPLEX [Concomitant]
     Active Substance: CYANOCOBALAMIN\DEXPANTHENOL\NIACINAMIDE\PYRIDOXINE HYDROCHLORIDE\RIBOFLAVIN 5^-PHOSPHATE SODIUM\THIAMINE HYDROCHLORIDE\VITAMIN B COMPLEX
  4. CIPROFLOXACIN HCL [Suspect]
     Active Substance: CIPROFLOXACIN HYDROCHLORIDE
     Indication: KIDNEY INFECTION
     Dosage: ?          QUANTITY:1 TABLET(S);?
     Route: 048
     Dates: start: 20191201, end: 20191207

REACTIONS (13)
  - Eye pain [None]
  - Fatigue [None]
  - Somnolence [None]
  - Dizziness [None]
  - Dysstasia [None]
  - Discomfort [None]
  - Feeling abnormal [None]
  - Nausea [None]
  - Abdominal pain [None]
  - Muscle disorder [None]
  - Headache [None]
  - Bruxism [None]
  - Pain in jaw [None]

NARRATIVE: CASE EVENT DATE: 20191207
